FAERS Safety Report 6326724-7 (Version None)
Quarter: 2009Q3

REPORT INFORMATION
  Report Type: 
  Country: None (occurrence: None)
  Receive Date: 20090825
  Receipt Date: 20090821
  Transmission Date: 20100115
  Serious: Yes (Death)
  Sender: FDA-Public Use
  Company Number: PHHY2009CL35526

PATIENT
  Age: 86 Year
  Sex: Female

DRUGS (1)
  1. EXELON [Suspect]
     Dosage: 10 MG/ONE TABLET PER DAY
     Route: 048
     Dates: start: 20071001

REACTIONS (1)
  - GENERAL PHYSICAL HEALTH DETERIORATION [None]
